FAERS Safety Report 7400840-0 (Version None)
Quarter: 2011Q2

REPORT INFORMATION
  Report Type: 
  Country: None (occurrence: None)
  Receive Date: 20110407
  Receipt Date: 20110405
  Transmission Date: 20111010
  Serious: Yes (Death, Other)
  Sender: FDA-Public Use
  Company Number: PHHY2011GB20214

PATIENT
  Age: 46 Year
  Sex: Female
  Weight: 74 kg

DRUGS (3)
  1. RAMIPRIL [Concomitant]
     Indication: HYPERTENSION
     Dosage: 2.5 MG, QD
     Dates: start: 20091101
  2. RAMIPRIL [Concomitant]
     Dosage: 5 MG, QD
     Route: 048
     Dates: start: 20100104
  3. PROPRANOLOL [Suspect]
     Indication: ANXIETY
     Dosage: 40 MG, TID
     Route: 048
     Dates: start: 20110124

REACTIONS (3)
  - ARRHYTHMIA [None]
  - CHEST PAIN [None]
  - LEFT VENTRICULAR HYPERTROPHY [None]
